FAERS Safety Report 8224920-5 (Version None)
Quarter: 2012Q1

REPORT INFORMATION
  Report Type: 
  Country: None (occurrence: None)
  Receive Date: 20120319
  Receipt Date: 20120306
  Transmission Date: 20120608
  Serious: Yes (Life-Threatening, Hospitalization)
  Sender: FDA-Public Use
  Company Number: 1220536

PATIENT
  Age: 61 Year
  Sex: Female
  Weight: 48.9885 kg

DRUGS (8)
  1. DOCETAXEL [Suspect]
     Indication: BREAST CANCER
     Dosage: INTRAVENOUS (NOT OTHERWISE SPECIFIED)
     Route: 042
     Dates: start: 20111212, end: 20120104
  2. FUROSEMIDE [Concomitant]
  3. PROPAFENONE HCL [Concomitant]
  4. INSPRA [Concomitant]
  5. LOSARTAN POTASSIUM AND HYDROCHLOROTHIAZIDE [Concomitant]
  6. OMEPRAZOLE [Concomitant]
  7. CYCLOPHOSPHAMIDE [Suspect]
     Indication: BREAST CANCER
     Dosage: INTRAVENOUS (NOT OTHERWISE SPECIFIED)
     Route: 042
     Dates: start: 20111212, end: 20120104
  8. ASPIRIN [Concomitant]

REACTIONS (7)
  - SHOCK [None]
  - HYPOTENSION [None]
  - SEPTIC SHOCK [None]
  - BLOOD POTASSIUM DECREASED [None]
  - HYPOVOLAEMIA [None]
  - AGRANULOCYTOSIS [None]
  - DIARRHOEA [None]
